FAERS Safety Report 10082607 (Version 3)
Quarter: 2014Q2

REPORT INFORMATION
  Report Type: Spontaneous
  Country: BR (occurrence: BR)
  Receive Date: 20140416
  Receipt Date: 20140430
  Transmission Date: 20141212
  Serious: Yes (Hospitalization)
  Sender: FDA-Public Use
  Company Number: BR-009507513-1404BRA004564

PATIENT
  Age: 65 Year
  Sex: Male
  Weight: 92.5 kg

DRUGS (9)
  1. JANUMET [Suspect]
     Indication: DIABETES MELLITUS
     Dosage: 1 DF, QD
     Route: 048
     Dates: start: 201312
  2. JANUMET [Suspect]
     Dosage: 1 DF, QD
     Route: 048
     Dates: start: 20131225, end: 201401
  3. DIOVAN HCT [Concomitant]
     Indication: HYPERTENSION
     Dosage: 1 DF, QAM
     Dates: start: 2013
  4. OMEPRAZOLE [Concomitant]
     Indication: PROPHYLAXIS
     Dosage: 50 MG, BID
     Dates: start: 2013
  5. SERTRALINE HYDROCHLORIDE [Concomitant]
     Indication: INSOMNIA
     Dosage: 50 MG, QPM
  6. GLIFAGE [Concomitant]
     Indication: DIABETES MELLITUS
     Dosage: 750 MG, TID
     Dates: start: 201310, end: 201312
  7. GLIFAGE [Concomitant]
     Dosage: 750 MG, BID
     Dates: start: 201312, end: 201401
  8. GLIFAGE [Concomitant]
     Dosage: 750 MG, TID
     Dates: start: 201401
  9. GLIMEPIRIDE [Concomitant]
     Indication: DIABETES MELLITUS
     Dosage: 2 MG, QD
     Dates: start: 201310

REACTIONS (4)
  - Dermatitis [Recovered/Resolved with Sequelae]
  - Vasodilatation [Not Recovered/Not Resolved]
  - Dry skin [Not Recovered/Not Resolved]
  - Inappropriate schedule of drug administration [Unknown]
